FAERS Safety Report 6266519-6 (Version None)
Quarter: 2009Q3

REPORT INFORMATION
  Report Type: 
  Country: None (occurrence: None)
  Receive Date: 20090710
  Receipt Date: 20090701
  Transmission Date: 20100115
  Serious: Yes (Other)
  Sender: FDA-Public Use
  Company Number: 2009AP002655

PATIENT
  Age: 62 Year
  Sex: Male

DRUGS (17)
  1. GEMFIBROZIL [Suspect]
     Indication: ATRIAL FIBRILLATION
     Dosage: 600 MG;BID
     Dates: start: 20080108, end: 20080523
  2. WARFARIN SODIUM [Suspect]
     Indication: ATRIAL FIBRILLATION
     Dosage: 45 MG;QW; 40 MG;QW; 37.5 MG;QW; 35 MG;QW
     Dates: start: 20080130
  3. WARFARIN SODIUM [Suspect]
     Indication: ATRIAL FIBRILLATION
     Dosage: 45 MG;QW; 40 MG;QW; 37.5 MG;QW; 35 MG;QW
     Dates: start: 20080207
  4. WARFARIN SODIUM [Suspect]
     Indication: ATRIAL FIBRILLATION
     Dosage: 45 MG;QW; 40 MG;QW; 37.5 MG;QW; 35 MG;QW
     Dates: start: 20080318
  5. WARFARIN SODIUM [Suspect]
     Indication: ATRIAL FIBRILLATION
     Dosage: 45 MG;QW; 40 MG;QW; 37.5 MG;QW; 35 MG;QW
     Dates: start: 20080708
  6. WARFARIN SODIUM [Suspect]
     Indication: ATRIAL FIBRILLATION
     Dosage: 45 MG;QW; 40 MG;QW; 37.5 MG;QW; 35 MG;QW
     Dates: start: 20080722
  7. LISINOPRIL [Concomitant]
  8. METOPROLOL TARTRATE [Concomitant]
  9. TRIAMTERENE [Concomitant]
  10. HYDROCHLOROTHIAZIDE [Concomitant]
  11. FUROSEMIDE [Concomitant]
  12. DILTIAZEM [Concomitant]
  13. PROPAFENONE HCL [Concomitant]
  14. METFORMIN HCL [Concomitant]
  15. INSULIN ASPART [Concomitant]
  16. FISH OIL [Concomitant]
  17. ACETYLSALICYLIC ACID [Concomitant]

REACTIONS (4)
  - ALANINE AMINOTRANSFERASE INCREASED [None]
  - DRUG INTERACTION [None]
  - INTERNATIONAL NORMALISED RATIO INCREASED [None]
  - MYALGIA [None]
